FAERS Safety Report 7949476-3 (Version None)
Quarter: 2011Q4

REPORT INFORMATION
  Report Type: 
  Country: None (occurrence: None)
  Receive Date: 20111130
  Receipt Date: 20111128
  Transmission Date: 20120403
  Serious: Yes (Hospitalization)
  Sender: FDA-Public Use
  Company Number: PL-GLAXOSMITHKLINE-Z0013026A

PATIENT
  Sex: Female
  Weight: 50.7 kg

DRUGS (4)
  1. OMEPRAZOLE [Concomitant]
     Indication: PROPHYLAXIS
     Dosage: 20MG PER DAY
     Route: 048
     Dates: start: 20111125
  2. LAPATINIB [Suspect]
     Indication: BREAST CANCER METASTATIC
     Dosage: 1250MG PER DAY
     Route: 048
     Dates: start: 20110704
  3. CAPECITABINE [Suspect]
     Indication: BREAST CANCER METASTATIC
     Dosage: 2000MGM2 CYCLIC
     Route: 048
     Dates: start: 20110704, end: 20111114
  4. VINORELBINE [Suspect]
     Indication: BREAST CANCER METASTATIC
     Dosage: 20MGM2 CYCLIC
     Route: 042
     Dates: start: 20111121

REACTIONS (2)
  - DIARRHOEA [None]
  - FEBRILE NEUTROPENIA [None]
